FAERS Safety Report 17736366 (Version 1)
Quarter: 2020Q2

REPORT INFORMATION
  Report Type: Spontaneous
  Country: ES (occurrence: ES)
  Receive Date: 20200501
  Receipt Date: 20200501
  Transmission Date: 20200714
  Serious: Yes (Other)
  Sender: FDA-Public Use
  Company Number: ES-FRESENIUS KABI-FK202004303

PATIENT
  Age: 5 Month
  Sex: Female
  Weight: 6 kg

DRUGS (4)
  1. VALPROATE SODIUM. [Suspect]
     Active Substance: VALPROATE SODIUM
     Indication: EPILEPSY
     Route: 048
  2. VALPROATE [Suspect]
     Active Substance: VALPROIC ACID
     Indication: EPILEPSY
     Route: 040
  3. VALPROATE [Suspect]
     Active Substance: VALPROIC ACID
     Dosage: 20 MG/KG (RATE OF 1MG/KG/HR)
     Route: 065
  4. VALPROATE [Suspect]
     Active Substance: VALPROIC ACID
     Dosage: 20 MG/KG (RATE OF 1,5 MG/KG/HR)
     Route: 065

REACTIONS (3)
  - Toxicity to various agents [Recovered/Resolved]
  - Overdose [Recovered/Resolved]
  - Hyperammonaemic encephalopathy [Recovered/Resolved]
